FAERS Safety Report 10197317 (Version 1)
Quarter: 2014Q2

REPORT INFORMATION
  Report Type: Report from Study
  Country: CA (occurrence: CA)
  Receive Date: 20140527
  Receipt Date: 20140527
  Transmission Date: 20141212
  Serious: Yes (Other)
  Sender: FDA-Public Use
  Company Number: CA-JNJFOC-20140514075

PATIENT
  Age: 19 Year
  Sex: Female
  Weight: 55 kg

DRUGS (3)
  1. REMICADE [Suspect]
     Indication: CROHN^S DISEASE
     Route: 042
     Dates: start: 20121002
  2. DOXYCYCLINE [Suspect]
     Indication: CYST
     Route: 048
     Dates: start: 20140330
  3. FUCIDIN [Concomitant]
     Route: 065

REACTIONS (2)
  - Hidradenitis [Recovered/Resolved]
  - Oropharyngeal pain [Not Recovered/Not Resolved]
